FAERS Safety Report 7352005-9 (Version None)
Quarter: 2011Q1

REPORT INFORMATION
  Report Type: 
  Country: None (occurrence: None)
  Receive Date: 20110309
  Receipt Date: 20110309
  Transmission Date: 20110831
  Serious: Yes (Other)
  Sender: FDA-Public Use
  Company Number: None

PATIENT
  Sex: Female
  Weight: 61.2356 kg

DRUGS (1)
  1. AVEENO POS AGELSS REJUV NIGHT CREAM [Suspect]
     Dosage: DAILY, TOPICAL
     Route: 061
     Dates: start: 20101101

REACTIONS (1)
  - WHEEZING [None]
